FAERS Safety Report 5609346-2 (Version None)
Quarter: 2008Q1

REPORT INFORMATION
  Report Type: 
  Country: None (occurrence: None)
  Receive Date: 20080131
  Receipt Date: 20080121
  Transmission Date: 20080703
  Serious: Yes (Other)
  Sender: FDA-Public Use
  Company Number: DE-ASTRAZENECA-2008PK00196

PATIENT
  Age: 70 Year
  Sex: Female
  Weight: 47 kg

DRUGS (6)
  1. SYMBICORT [Suspect]
     Indication: CHRONIC OBSTRUCTIVE PULMONARY DISEASE
     Dosage: 320/9 TWO PUFFS PER DAY
     Route: 055
  2. SPIRIVA [Concomitant]
     Route: 055
  3. OXIS [Concomitant]
     Route: 055
  4. BECLAMETHASON [Concomitant]
     Route: 055
  5. THEOPHYLLINE [Concomitant]
  6. BERODUAL [Concomitant]

REACTIONS (1)
  - OESOPHAGEAL CANDIDIASIS [None]
